FAERS Safety Report 25918830 (Version 1)
Quarter: 2025Q4

REPORT INFORMATION
  Report Type: Report from Study
  Country: GB (occurrence: GB)
  Receive Date: 20251014
  Receipt Date: 20251014
  Transmission Date: 20260118
  Serious: Yes (Other)
  Sender: ABBVIE
  Company Number: GB-ABBVIE-6498906

PATIENT
  Sex: Male

DRUGS (1)
  1. SKYRIZI [Suspect]
     Active Substance: RISANKIZUMAB-RZAA
     Indication: Crohn^s disease
     Dosage: SKYRIZI 360MG/2.4ML. DOSE FORM: SOLUTION FOR INJECTION IN CARTRIDGE. LAST INJECTION ON 14 AUG 2025
     Route: 058

REACTIONS (2)
  - Stoma closure [Unknown]
  - Malaise [Unknown]
